FAERS Safety Report 7978340-9 (Version None)
Quarter: 2011Q4

REPORT INFORMATION
  Report Type: 
  Country: None (occurrence: None)
  Receive Date: 20111214
  Receipt Date: 20111206
  Transmission Date: 20120403
  Serious: Yes (Hospitalization)
  Sender: FDA-Public Use
  Company Number: JP-UCBSA-047224

PATIENT
  Age: 20 Year
  Sex: Male

DRUGS (7)
  1. VALPROATE SODIUM [Concomitant]
     Route: 048
  2. GABAPENTIN [Concomitant]
     Route: 048
  3. CLOBAZAM [Concomitant]
     Route: 048
  4. CARBAMAZEPINE [Concomitant]
     Route: 048
  5. PHENYTOIN [Concomitant]
     Route: 048
  6. KEPPRA [Suspect]
     Dosage: DAILY DOSE 2000 MG
     Route: 048
     Dates: start: 20110101, end: 20110101
  7. KEPPRA [Suspect]
     Indication: EPILEPSY
     Route: 048
     Dates: start: 20111001, end: 20110101

REACTIONS (2)
  - ABNORMAL BEHAVIOUR [None]
  - DISINHIBITION [None]
